FAERS Safety Report 16332654 (Version 2)
Quarter: 2020Q1

REPORT INFORMATION
  Report Type: Spontaneous
  Country: US (occurrence: US)
  Receive Date: 20190520
  Receipt Date: 20200113
  Transmission Date: 20200409
  Serious: No
  Sender: FDA-Public Use
  Company Number: US-PFIZER INC-2019212425

PATIENT
  Age: 45 Year
  Sex: Female
  Weight: 73 kg

DRUGS (1)
  1. XELJANZ XR [Suspect]
     Active Substance: TOFACITINIB CITRATE
     Indication: ANKYLOSING SPONDYLITIS
     Dosage: 11 MG, DAILY
     Route: 048
     Dates: start: 201901

REACTIONS (5)
  - Sinusitis [Recovering/Resolving]
  - Diarrhoea [Unknown]
  - Off label use [Unknown]
  - Faeces discoloured [Unknown]
  - Product use in unapproved indication [Unknown]

NARRATIVE: CASE EVENT DATE: 201901
